FAERS Safety Report 7022176-2 (Version None)
Quarter: 2010Q3

REPORT INFORMATION
  Report Type: 
  Country: None (occurrence: None)
  Receive Date: 20100930
  Receipt Date: 20100927
  Transmission Date: 20110219
  Serious: Yes (Death, Hospitalization)
  Sender: FDA-Public Use
  Company Number: PHHY2010ES62262

PATIENT
  Age: 82 Year
  Sex: Female

DRUGS (3)
  1. KALPRESS [Suspect]
     Indication: HYPERTENSION
     Dosage: 40MG DAILY
     Route: 048
     Dates: start: 20090901, end: 20100201
  2. KALPRESS [Suspect]
     Dosage: 80MG DAILY
     Route: 048
     Dates: start: 20100301, end: 20100801
  3. IBUPROFEN [Concomitant]
     Indication: PAIN
     Dosage: 400 MG DAILY

REACTIONS (3)
  - HEPATIC NECROSIS [None]
  - HEPATITIS [None]
  - JAUNDICE [None]
